FAERS Safety Report 10612106 (Version 1)
Quarter: 2014Q4

REPORT INFORMATION
  Report Type: Spontaneous
  Country: US (occurrence: US)
  Receive Date: 20141127
  Receipt Date: 20141127
  Transmission Date: 20150529
  Serious: Yes (Hospitalization)
  Sender: FDA-Public Use
  Company Number: US-ROCHE-1497397

PATIENT
  Age: 26 Year
  Sex: Male

DRUGS (10)
  1. OMALIZUMAB [Suspect]
     Active Substance: OMALIZUMAB
     Indication: DERMATITIS ATOPIC
  2. GABAPENTIN. [Suspect]
     Active Substance: GABAPENTIN
     Indication: DERMATITIS ATOPIC
  3. CICLOSPORIN [Suspect]
     Active Substance: CYCLOSPORINE
     Indication: DERMATITIS ATOPIC
  4. OMALIZUMAB [Suspect]
     Active Substance: OMALIZUMAB
     Indication: PRURITUS GENERALISED
     Route: 065
  5. METHOTREXATE [Suspect]
     Active Substance: METHOTREXATE
     Indication: PRURITUS GENERALISED
     Route: 065
  6. GABAPENTIN. [Suspect]
     Active Substance: GABAPENTIN
     Indication: PRURITUS GENERALISED
     Route: 065
  7. TERBINAFINE [Suspect]
     Active Substance: TERBINAFINE
     Indication: DERMATITIS ATOPIC
  8. TERBINAFINE [Suspect]
     Active Substance: TERBINAFINE
     Indication: PRURITUS GENERALISED
     Route: 065
  9. CICLOSPORIN [Suspect]
     Active Substance: CYCLOSPORINE
     Indication: PRURITUS GENERALISED
     Route: 065
  10. METHOTREXATE [Suspect]
     Active Substance: METHOTREXATE
     Indication: DERMATITIS ATOPIC

REACTIONS (2)
  - Drug ineffective [Unknown]
  - Dermatitis atopic [Unknown]
